FAERS Safety Report 8363332-0 (Version None)
Quarter: 2012Q2

REPORT INFORMATION
  Report Type: 
  Country: None (occurrence: None)
  Receive Date: 20120515
  Receipt Date: 20120515
  Transmission Date: 20120825
  Serious: Yes (Hospitalization)
  Sender: FDA-Public Use
  Company Number: None

PATIENT
  Age: 63 Year
  Sex: Female
  Weight: 85.5 kg

DRUGS (1)
  1. ETOMIDATE [Suspect]
     Dates: start: 20091221, end: 20091221

REACTIONS (3)
  - BLEPHAROSPASM [None]
  - AMNESIA [None]
  - TONGUE DISORDER [None]
